FAERS Safety Report 7644507-2 (Version None)
Quarter: 2011Q3

REPORT INFORMATION
  Report Type: 
  Country: None (occurrence: None)
  Receive Date: 20110729
  Receipt Date: 20110722
  Transmission Date: 20111222
  Serious: Yes (Death, Other)
  Sender: FDA-Public Use
  Company Number: JP-ROCHE-792522

PATIENT
  Sex: Male
  Weight: 67 kg

DRUGS (4)
  1. ALIMTA [Suspect]
     Route: 041
     Dates: start: 20100915, end: 20101006
  2. ALIMTA [Suspect]
     Indication: LUNG ADENOCARCINOMA
     Route: 041
     Dates: start: 20100531, end: 20100817
  3. AVASTIN [Suspect]
     Indication: LUNG ADENOCARCINOMA
     Route: 041
     Dates: start: 20100531, end: 20101006
  4. CARBOPLATIN [Concomitant]
     Route: 041
     Dates: start: 20100531, end: 20100817

REACTIONS (3)
  - PNEUMONIA [None]
  - PLATELET COUNT DECREASED [None]
  - HAEMOGLOBIN DECREASED [None]
